FAERS Safety Report 8075605-X (Version None)
Quarter: 2012Q1

REPORT INFORMATION
  Report Type: 
  Country: None (occurrence: None)
  Receive Date: 20120127
  Receipt Date: 20120117
  Transmission Date: 20120608
  Serious: Yes (Other)
  Sender: FDA-Public Use
  Company Number: US-JNJFOC-20111111351

PATIENT
  Sex: Female

DRUGS (11)
  1. TOPAMAX [Concomitant]
     Indication: DEPRESSION
     Route: 048
     Dates: start: 20110101
  2. MIRTAZAPINE [Concomitant]
     Indication: DEPRESSION
     Route: 048
     Dates: start: 20110101
  3. ATIVAN [Concomitant]
     Indication: ANXIETY
     Route: 048
     Dates: start: 20110101
  4. LISINOPRIL [Concomitant]
     Indication: HYPERTENSION
     Route: 065
     Dates: start: 20110101
  5. REMICADE [Suspect]
     Indication: INFLAMMATORY BOWEL DISEASE
     Route: 042
     Dates: start: 20110725, end: 20110922
  6. EFFEXOR [Concomitant]
     Indication: DEPRESSION
     Route: 048
     Dates: start: 20110101
  7. HYDROCHLOROTHIAZIDE [Concomitant]
     Indication: HYPERTENSION
     Route: 065
     Dates: start: 20110101
  8. INDERAL [Concomitant]
     Indication: HYPERTENSION
     Route: 065
     Dates: start: 20110101
  9. REMICADE [Suspect]
     Route: 042
     Dates: start: 20110725, end: 20110922
  10. REMICADE [Suspect]
     Route: 042
     Dates: start: 20110418, end: 20110531
  11. REMICADE [Suspect]
     Indication: COLITIS ULCERATIVE
     Route: 042
     Dates: start: 20110418, end: 20110531

REACTIONS (4)
  - HUMAN ANTICHIMERIC ANTIBODY POSITIVE [None]
  - DRUG EFFECT DECREASED [None]
  - ABDOMINAL PAIN [None]
  - DIARRHOEA HAEMORRHAGIC [None]
